FAERS Safety Report 22763214 (Version 2)
Quarter: 2024Q3

REPORT INFORMATION
  Report Type: Report from Study
  Country: IT (occurrence: IT)
  Receive Date: 20230729
  Receipt Date: 20240715
  Transmission Date: 20241017
  Serious: Yes (Other)
  Sender: TEVA
  Company Number: None

PATIENT
  Age: 12 Year
  Sex: Male
  Weight: 52 kg

DRUGS (5)
  1. VINCRISTINE [Suspect]
     Active Substance: VINCRISTINE
     Indication: Hodgkin^s disease
     Dosage: 2 MG/DAY ON 13, 20 AND 27/06/23, VINCRISTINA TEVA ITALIA
     Route: 042
     Dates: start: 20230613, end: 20230627
  2. ETOPOSIDE [Suspect]
     Active Substance: ETOPOSIDE
     Indication: Hodgkin^s disease
     Dosage: 194 MG/DAY FROM DAY 13/06/23 TO DAY 17/06/23
     Route: 042
     Dates: start: 20230613, end: 20230617
  3. LANSOPRAZOLE [Concomitant]
     Active Substance: LANSOPRAZOLE
     Indication: Abdominal pain upper
     Route: 048
     Dates: start: 20230613, end: 20230629
  4. PREDNISONE [Concomitant]
     Active Substance: PREDNISONE
     Indication: Hodgkin^s disease
     Route: 048
     Dates: start: 20230613, end: 20230627
  5. DOXORUBICIN HYDROCHLORIDE [Suspect]
     Active Substance: DOXORUBICIN HYDROCHLORIDE
     Indication: Hodgkin^s disease
     Dosage: DOXORUBICINA ACCORD HEALTHCARE ITALIA
     Route: 042
     Dates: start: 20230613, end: 20230627

REACTIONS (4)
  - Neutropenia [Recovering/Resolving]
  - Constipation [Recovering/Resolving]
  - Leukopenia [Recovered/Resolved]
  - Alopecia [Not Recovered/Not Resolved]

NARRATIVE: CASE EVENT DATE: 20230620
